FAERS Safety Report 8574172-1 (Version None)
Quarter: 2012Q3

REPORT INFORMATION
  Report Type: 
  Country: None (occurrence: None)
  Receive Date: 20120806
  Receipt Date: 20120730
  Transmission Date: 20120928
  Serious: Yes (Hospitalization)
  Sender: FDA-Public Use
  Company Number: CA-JNJFOC-20110701396

PATIENT
  Sex: Male
  Weight: 138.35 kg

DRUGS (2)
  1. USTEKINUMAB [Suspect]
     Indication: PSORIASIS
     Route: 058
     Dates: start: 20100330, end: 20101019
  2. USTEKINUMAB [Suspect]
     Route: 058
     Dates: start: 20110225

REACTIONS (5)
  - RHEUMATOID ARTHRITIS [None]
  - HIP FRACTURE [None]
  - CELLULITIS [None]
  - DEVICE RELATED INFECTION [None]
  - HIP ARTHROPLASTY [None]
